FAERS Safety Report 19008933 (Version 2)
Quarter: 2021Q2

REPORT INFORMATION
  Report Type: Report from Study
  Country: GB (occurrence: GB)
  Receive Date: 20210316
  Receipt Date: 20210413
  Transmission Date: 20210717
  Serious: Yes (Hospitalization, Other)
  Sender: FDA-Public Use
  Company Number: GB-TEVA-2021-GB-1887068

PATIENT
  Age: 54 Year
  Sex: Female

DRUGS (22)
  1. METOCLOPRAMIDE. [Concomitant]
     Active Substance: METOCLOPRAMIDE
     Indication: PROPHYLAXIS OF NAUSEA AND VOMITING
     Dosage: 30 MILLIGRAM DAILY;
     Route: 048
     Dates: start: 20170316
  2. ONDANSETRON [Concomitant]
     Active Substance: ONDANSETRON
     Indication: PROPHYLAXIS OF NAUSEA AND VOMITING
     Dosage: 16 MILLIGRAM DAILY;
     Route: 048
     Dates: start: 20170316
  3. TRASTUZUMAB. [Suspect]
     Active Substance: TRASTUZUMAB
     Dosage: 600 MILLIGRAM IN EVERY 3 WEEKS
     Route: 058
     Dates: start: 20170316, end: 20171130
  4. DEXAMETHASONE. [Concomitant]
     Active Substance: DEXAMETHASONE
     Dosage: 16 MILLIGRAM DAILY;
     Route: 048
     Dates: start: 20170315
  5. DEXAMETHASONE. [Concomitant]
     Active Substance: DEXAMETHASONE
     Dosage: 1 MILLIGRAM DAILY;
     Route: 048
     Dates: start: 201811, end: 20181113
  6. TRASTUZUMAB. [Suspect]
     Active Substance: TRASTUZUMAB
     Indication: BREAST CANCER METASTATIC
     Dosage: 600 MILLIGRAM IN EVERY 3 WEEKS
     Route: 041
     Dates: start: 20170316, end: 20171130
  7. DEXAMETHASONE. [Concomitant]
     Active Substance: DEXAMETHASONE
     Indication: PREMEDICATION
     Dosage: 0.5 MILLIGRAM IN EVERY 2 DAYS
     Route: 048
     Dates: start: 20190601
  8. DEXAMETHASONE. [Concomitant]
     Active Substance: DEXAMETHASONE
     Dosage: .5 MILLIGRAM DAILY;
     Route: 048
     Dates: start: 20181113
  9. GRANISETRON [Concomitant]
     Active Substance: GRANISETRON
     Indication: PREMEDICATION
     Dosage: FREQUENCY: ONCE BEFORE TREATMENT, 1 MILLIGRAM
     Route: 042
     Dates: start: 20170316
  10. NYSTATIN. [Concomitant]
     Active Substance: NYSTATIN
     Dosage: DOSE: 100000 U IN A DAY
     Route: 048
     Dates: start: 20190603
  11. PERTUZUMAB. [Suspect]
     Active Substance: PERTUZUMAB
     Indication: BREAST CANCER METASTATIC
     Dosage: 420 MG IN EVERY 3 WEEKS
     Route: 042
     Dates: start: 20170406
  12. PERTUZUMAB. [Suspect]
     Active Substance: PERTUZUMAB
     Dosage: FREQUENCY: OTHER, 840 MILLIGRAM
     Route: 042
     Dates: start: 20170316, end: 20170316
  13. CHLORPHENAMINE [Concomitant]
     Active Substance: CHLORPHENIRAMINE MALEATE
     Indication: PREMEDICATION
     Dosage: FREQUENCY: ONCE BEFORE TREATMENT, 10 MILLIGRAM
     Route: 042
     Dates: start: 20170316
  14. APREPITANT. [Concomitant]
     Active Substance: APREPITANT
     Indication: PREMEDICATION
     Dosage: 250 MILLIGRAM DAILY; FREQUENCY: ONCE BEFORE TREATMENT
     Route: 048
     Dates: start: 20170316
  15. DEXAMETHASONE. [Concomitant]
     Active Substance: DEXAMETHASONE
     Indication: PROPHYLAXIS OF NAUSEA AND VOMITING
     Dosage: FREQUENCY: ONCE BEFORE TREATMENT, 6.6 MILLIGRAM
     Route: 042
     Dates: start: 20170316
  16. PARACETAMOL [Concomitant]
     Active Substance: ACETAMINOPHEN
     Indication: PREMEDICATION
     Dosage: FREQUENCY: ONCE BEFORE TREATMENT, 1000 MILLIGRAM
     Route: 048
     Dates: start: 20170316
  17. SODIUM FUSIDATE [Concomitant]
     Active Substance: FUSIDATE SODIUM
     Dosage: 2 PERCENT DAILY;
     Route: 061
     Dates: start: 20170324, end: 20170328
  18. DALTEPARIN [Concomitant]
     Active Substance: DALTEPARIN
     Indication: PROPHYLAXIS
     Dosage: 2 PERCENT DAILY;
     Route: 061
     Dates: start: 20170327, end: 20170328
  19. HYDROCORTISONE. [Concomitant]
     Active Substance: HYDROCORTISONE
     Indication: PREMEDICATION
     Dosage: FREQUENCY: ONCE BEFORE TREATMENT, 1 PERCENT
     Route: 061
     Dates: start: 2015
  20. DOCETAXEL. [Suspect]
     Active Substance: DOCETAXEL
     Indication: BREAST CANCER METASTATIC
     Dosage: 120 MG IN EVERY 3 WKS
     Route: 042
     Dates: start: 20170316, end: 20170629
  21. TRASTUZUMAB. [Suspect]
     Active Substance: TRASTUZUMAB
     Dosage: 350 MILLIGRAM IN EVERY 3 WEEKS
     Route: 042
     Dates: start: 20171220
  22. DENOSUMAB [Concomitant]
     Active Substance: DENOSUMAB
     Indication: BONE DISORDER
     Dosage: 120 MILLIGRAM IN EVERY 6 WEEKS
     Route: 058
     Dates: start: 20180111

REACTIONS (11)
  - Nausea [Not Recovered/Not Resolved]
  - Malaise [Recovered/Resolved]
  - Alopecia [Recovered/Resolved]
  - Haematemesis [Recovered/Resolved]
  - Decreased appetite [Not Recovered/Not Resolved]
  - Pain in jaw [Recovered/Resolved]
  - Hypernatraemia [Recovered/Resolved]
  - Neutropenia [Recovered/Resolved]
  - Candida infection [Recovered/Resolved]
  - Fatigue [Not Recovered/Not Resolved]
  - Onychalgia [Recovered/Resolved]

NARRATIVE: CASE EVENT DATE: 201703
